FAERS Safety Report 7764915-9 (Version None)
Quarter: 2011Q3

REPORT INFORMATION
  Report Type: 
  Country: None (occurrence: None)
  Receive Date: 20110921
  Receipt Date: 20110911
  Transmission Date: 20111222
  Serious: Yes (Hospitalization)
  Sender: FDA-Public Use
  Company Number: US-JNJFOC-20110905791

PATIENT
  Sex: Male

DRUGS (1)
  1. LISTERINE COOLMINT [Suspect]
     Indication: PRODUCT USED FOR UNKNOWN INDICATION
     Dosage: ABOUT 1 CUP
     Route: 048
     Dates: start: 20110911

REACTIONS (2)
  - INTENTIONAL DRUG MISUSE [None]
  - INCORRECT ROUTE OF DRUG ADMINISTRATION [None]
